FAERS Safety Report 6786277-6 (Version None)
Quarter: 2010Q2

REPORT INFORMATION
  Report Type: 
  Country: None (occurrence: None)
  Receive Date: 20100623
  Receipt Date: 20100611
  Transmission Date: 20101027
  Serious: Yes (Hospitalization, Other)
  Sender: FDA-Public Use
  Company Number: US-WYE-H14619410

PATIENT
  Sex: Female
  Weight: 74 kg

DRUGS (2)
  1. PREMPRO [Suspect]
     Indication: HORMONE REPLACEMENT THERAPY
  2. PREMARIN [Suspect]
     Indication: HORMONE REPLACEMENT THERAPY

REACTIONS (3)
  - DYSFUNCTIONAL UTERINE BLEEDING [None]
  - LABILE BLOOD PRESSURE [None]
  - UNDERWEIGHT [None]
